FAERS Safety Report 11763298 (Version 1)
Quarter: 2015Q4

REPORT INFORMATION
  Report Type: Spontaneous
  Country: US (occurrence: US)
  Receive Date: 20151120
  Receipt Date: 20151120
  Transmission Date: 20160304
  Serious: No
  Sender: FDA-Public Use
  Company Number: US-ELI_LILLY_AND_COMPANY-US201303002701

PATIENT
  Sex: Female

DRUGS (3)
  1. FORTEO [Suspect]
     Active Substance: TERIPARATIDE
     Indication: OSTEOPOROSIS
     Dosage: UNK, QD
     Route: 065
     Dates: end: 20130222
  2. CALCIUM [Concomitant]
     Active Substance: CALCIUM
     Dosage: UNK, UNKNOWN
     Route: 065
  3. VITAMIN D3 [Concomitant]
     Active Substance: CHOLECALCIFEROL
     Dosage: UNK, UNKNOWN
     Route: 065

REACTIONS (12)
  - Compression fracture [Not Recovered/Not Resolved]
  - Bone pain [Recovering/Resolving]
  - Injection site erythema [Recovering/Resolving]
  - Pain in extremity [Recovering/Resolving]
  - Skin sensitisation [Recovering/Resolving]
  - Blood pressure increased [Recovered/Resolved]
  - Pain [Recovering/Resolving]
  - Nausea [Recovered/Resolved]
  - Sleep disorder due to a general medical condition [Recovering/Resolving]
  - Bone disorder [Unknown]
  - Gastrooesophageal reflux disease [Recovering/Resolving]
  - Anxiety [Unknown]
